FAERS Safety Report 21202271 (Version 1)
Quarter: 2022Q3

REPORT INFORMATION
  Report Type: Spontaneous
  Country: US (occurrence: US)
  Receive Date: 20220811
  Receipt Date: 20220811
  Transmission Date: 20221027
  Serious: Yes (Hospitalization)
  Sender: FDA-Public Use
  Company Number: US-MYLANLABS-2021M1005480

PATIENT
  Age: 31 Year
  Sex: Female

DRUGS (4)
  1. MEMANTINE [Suspect]
     Active Substance: MEMANTINE
     Indication: Catatonia
     Dosage: 10 MILLIGRAM
     Route: 065
  2. LORAZEPAM [Suspect]
     Active Substance: LORAZEPAM
     Indication: Catatonia
     Dosage: 2 MILLIGRAM, TID
     Route: 065
  3. LORAZEPAM [Suspect]
     Active Substance: LORAZEPAM
     Dosage: UNK, DOSE INCREASED
     Route: 065
  4. AMANTADINE [Suspect]
     Active Substance: AMANTADINE
     Indication: Catatonia
     Dosage: 100 MILLIGRAM, BID
     Route: 065

REACTIONS (2)
  - Agitation [Unknown]
  - Sedation [Unknown]
